FAERS Safety Report 13451177 (Version 1)
Quarter: 2017Q2

REPORT INFORMATION
  Report Type: Spontaneous
  Country: US (occurrence: US)
  Receive Date: 20170417
  Receipt Date: 20170417
  Transmission Date: 20170830
  Serious: No
  Sender: FDA-Public Use
  Company Number: None

PATIENT
  Age: 74 Year
  Sex: Female
  Weight: 55.8 kg

DRUGS (9)
  1. ZINC. [Concomitant]
     Active Substance: ZINC
  2. CALCIUM [Concomitant]
     Active Substance: CALCIUM
  3. REFRESH EYE DROPS (MINERAL OIL\PETROLATUM) [Concomitant]
     Active Substance: MINERAL OIL\PETROLATUM
  4. XIIDRA [Suspect]
     Active Substance: LIFITEGRAST
     Indication: DRY EYE
     Dosage: ?          QUANTITY:1 DROP(S);?
     Route: 047
     Dates: start: 20170408, end: 20170412
  5. COPPER [Concomitant]
     Active Substance: COPPER
  6. TRAVATAN Z [Concomitant]
     Active Substance: TRAVOPROST
  7. MAGNESIUM [Concomitant]
     Active Substance: MAGNESIUM
  8. ANDROGRAPHIS COMPLEX [Concomitant]
  9. MACUGUARD [Concomitant]

REACTIONS (4)
  - Photophobia [None]
  - Visual impairment [None]
  - Malaise [None]
  - Eye pain [None]

NARRATIVE: CASE EVENT DATE: 20170412
